FAERS Safety Report 4371991-2 (Version None)
Quarter: 2004Q2

REPORT INFORMATION
  Report Type: 
  Country: None (occurrence: None)
  Receive Date: 20040603
  Receipt Date: 20040603
  Transmission Date: 20050107
  Serious: Yes (Other)
  Sender: FDA-Public Use
  Company Number: None

PATIENT
  Age: 13 Year
  Sex: Female
  Weight: 61.2356 kg

DRUGS (3)
  1. LEXAPRO [Suspect]
     Indication: COUGH
     Dosage: 10 MG ONCE A DAY BUCCAL
     Route: 002
     Dates: start: 20040304, end: 20040509
  2. LEXAPRO [Suspect]
     Indication: TIC
     Dosage: 10 MG ONCE A DAY BUCCAL
     Route: 002
     Dates: start: 20040304, end: 20040509
  3. TYLENOL W/ CODEINE [Concomitant]

REACTIONS (5)
  - ARTHRALGIA [None]
  - DRUG WITHDRAWAL SYNDROME [None]
  - EPISTAXIS [None]
  - MYALGIA [None]
  - VOMITING [None]
